FAERS Safety Report 16964250 (Version 1)
Quarter: 2019Q4

REPORT INFORMATION
  Report Type: Spontaneous
  Country: US (occurrence: US)
  Receive Date: 20191025
  Receipt Date: 20191025
  Transmission Date: 20200122
  Serious: Yes (Other)
  Sender: FDA-Public Use
  Company Number: None

PATIENT
  Age: 40 Year
  Sex: Female
  Weight: 45 kg

DRUGS (4)
  1. IRON [Concomitant]
     Active Substance: IRON
  2. VITAMIN D [Concomitant]
     Active Substance: VITAMIN D NOS
  3. OMEGA 3 [Concomitant]
     Active Substance: OMEGA-3 FATTY ACIDS
  4. ALLEGRA ALLERGY [Suspect]
     Active Substance: FEXOFENADINE HYDROCHLORIDE
     Indication: SEASONAL ALLERGY
     Route: 048
     Dates: start: 20191020, end: 20191020

REACTIONS (12)
  - Tachycardia [None]
  - Dyspnoea [None]
  - Chest discomfort [None]
  - Diarrhoea [None]
  - Hypoaesthesia [None]
  - Pain in extremity [None]
  - Nausea [None]
  - Dry mouth [None]
  - Myalgia [None]
  - Dizziness [None]
  - Burning sensation [None]
  - Peripheral swelling [None]

NARRATIVE: CASE EVENT DATE: 20191020
